FAERS Safety Report 20645401 (Version 1)
Quarter: 2022Q1

REPORT INFORMATION
  Report Type: Spontaneous
  Country: US (occurrence: US)
  Receive Date: 20220328
  Receipt Date: 20220328
  Transmission Date: 20220423
  Serious: No
  Sender: FDA-Public Use
  Company Number: US-DSJP-DSU-2022-110804AA

PATIENT
  Age: 84 Year
  Sex: Female

DRUGS (5)
  1. SAVAYSA [Suspect]
     Active Substance: EDOXABAN TOSYLATE
     Indication: Atrial fibrillation
     Dosage: 1 TABLET OF 60 MG, QD
     Route: 048
  2. SAVAYSA [Suspect]
     Active Substance: EDOXABAN TOSYLATE
     Dosage: 1 TABLET OF 30 MG, QD
     Route: 048
     Dates: start: 202203
  3. LEVOTHYROXINE [Concomitant]
     Active Substance: LEVOTHYROXINE
     Indication: Product used for unknown indication
     Dosage: UNK
     Route: 065
  4. AMLODIPINE [Concomitant]
     Active Substance: AMLODIPINE BESYLATE
     Indication: Product used for unknown indication
     Dosage: UNK
     Route: 065
  5. OMEPRAZOLE [Concomitant]
     Active Substance: OMEPRAZOLE
     Indication: Product used for unknown indication
     Dosage: UNK
     Route: 065

REACTIONS (2)
  - Blood creatinine decreased [Unknown]
  - Blood urea decreased [Unknown]

NARRATIVE: CASE EVENT DATE: 20220301
